FAERS Safety Report 15667913 (Version 1)
Quarter: 2018Q4

REPORT INFORMATION
  Report Type: Other
  Country: US (occurrence: US)
  Receive Date: 20181128
  Receipt Date: 20181128
  Transmission Date: 20190205
  Serious: Yes (Hospitalization)
  Sender: FDA-Public Use
  Company Number: US-STASON PHARMACEUTICALS, INC.-2059384

PATIENT
  Age: 16 Year
  Sex: Female
  Weight: 83.7 kg

DRUGS (5)
  1. VINCRISTINE SULFATE. [Suspect]
     Active Substance: VINCRISTINE SULFATE
  2. PREDNISONE. [Suspect]
     Active Substance: PREDNISONE
  3. RUXOLITINIB [Suspect]
     Active Substance: RUXOLITINIB
  4. METHOTREXATE. [Suspect]
     Active Substance: METHOTREXATE
  5. MERCAPTOPURINE. [Suspect]
     Active Substance: MERCAPTOPURINE
     Indication: ACUTE LYMPHOCYTIC LEUKAEMIA
     Dates: start: 20180312, end: 20181001

REACTIONS (4)
  - Acute kidney injury [Recovered/Resolved]
  - Pyrexia [Recovered/Resolved]
  - Cellulitis [Recovered/Resolved]
  - Erythema nodosum [Recovered/Resolved]

NARRATIVE: CASE EVENT DATE: 20180821
